FAERS Safety Report 12303270 (Version 2)
Quarter: 2016Q3

REPORT INFORMATION
  Report Type: Spontaneous
  Country: JP (occurrence: JP)
  Receive Date: 20160426
  Receipt Date: 20160725
  Transmission Date: 20161109
  Serious: Yes (Hospitalization, Other)
  Sender: FDA-Public Use
  Company Number: JP-BRISTOL-MYERS SQUIBB COMPANY-BMS-2016-029910

PATIENT
  Age: 70 Year
  Sex: Male

DRUGS (1)
  1. METGLUCO [Suspect]
     Active Substance: METFORMIN HYDROCHLORIDE
     Indication: PRODUCT USED FOR UNKNOWN INDICATION
     Route: 048

REACTIONS (6)
  - Encephalopathy [Recovering/Resolving]
  - Metabolic encephalopathy [Recovering/Resolving]
  - Altered state of consciousness [Recovering/Resolving]
  - Dysstasia [Recovering/Resolving]
  - Oedema [Recovering/Resolving]
  - Parkinsonian gait [Recovering/Resolving]
